FAERS Safety Report 7615820-X (Version None)
Quarter: 2011Q3

REPORT INFORMATION
  Report Type: 
  Country: None (occurrence: None)
  Receive Date: 20110711
  Receipt Date: 20110701
  Transmission Date: 20111222
  Serious: Yes (Hospitalization)
  Sender: FDA-Public Use
  Company Number: DKLU1068828

PATIENT
  Age: 8 Month
  Sex: Female

DRUGS (2)
  1. SABRIL [Suspect]
     Indication: INFANTILE SPASMS
     Dosage: 160 MG MILLIGRAM(S), 2 IN 1 D, ORAL
     Route: 048
     Dates: start: 20101213
  2. KEPPRA [Concomitant]

REACTIONS (4)
  - APNOEA [None]
  - GASTROINTESTINAL DISORDER [None]
  - CONVULSION [None]
  - TREMOR [None]
